FAERS Safety Report 8150408-6 (Version None)
Quarter: 2012Q1

REPORT INFORMATION
  Report Type: 
  Country: None (occurrence: None)
  Receive Date: 20120220
  Receipt Date: 20120216
  Transmission Date: 20120608
  Serious: Yes (Other)
  Sender: FDA-Public Use
  Company Number: US-PFIZER INC-2012042755

PATIENT
  Sex: Female
  Weight: 77.098 kg

DRUGS (3)
  1. NARDIL [Suspect]
     Indication: PANIC ATTACK
     Dosage: 15 MG, 3X/DAY
     Route: 048
     Dates: start: 19820101
  2. NARDIL [Suspect]
     Dosage: 15 MG, 2X/DAY
     Route: 048
  3. ASPIRIN [Concomitant]
     Dosage: UNK

REACTIONS (2)
  - BLOOD CHOLESTEROL INCREASED [None]
  - ARTERIAL STENOSIS [None]
